FAERS Safety Report 10922225 (Version 1)
Quarter: 2015Q1

REPORT INFORMATION
  Report Type: Report from Study
  Country: US (occurrence: US)
  Receive Date: 20150317
  Receipt Date: 20150317
  Transmission Date: 20150721
  Serious: Yes (Other)
  Sender: FDA-Public Use
  Company Number: US-EMD SERONO-8016636

PATIENT
  Sex: Male
  Weight: 68 kg

DRUGS (2)
  1. SEROSTIM [Suspect]
     Active Substance: SOMATROPIN
     Indication: HIV WASTING SYNDROME
     Route: 058
  2. SEROSTIM [Suspect]
     Active Substance: SOMATROPIN
     Indication: HIV INFECTION

REACTIONS (3)
  - Jaw disorder [Unknown]
  - Post procedural swelling [Unknown]
  - Procedural pain [Unknown]
